FAERS Safety Report 8840917 (Version 1)
Quarter: 2012Q4

REPORT INFORMATION
  Report Type: 
  Country: US (occurrence: US)
  Receive Date: 20121015
  Receipt Date: 20121015
  Transmission Date: 20130627
  Serious: Yes (Other)
  Sender: FDA-Public Use
  Company Number: US-ASTRAZENECA-2012SE76508

PATIENT
  Sex: Female

DRUGS (2)
  1. LISINOPRIL [Suspect]
     Route: 048
  2. CHEMOTHERAPY [Suspect]
     Route: 065

REACTIONS (4)
  - Neoplasm malignant [Unknown]
  - Chest pain [Unknown]
  - Haemorrhage [Unknown]
  - Hypoaesthesia [Unknown]
